FAERS Safety Report 14145838 (Version 1)
Quarter: 2017Q4

REPORT INFORMATION
  Report Type: Other
  Country: GB (occurrence: GB)
  Receive Date: 20171031
  Receipt Date: 20171031
  Transmission Date: 20180321
  Serious: Yes (Hospitalization, Other)
  Sender: FDA-Public Use
  Company Number: GB-HERITAGE PHARMACEUTICALS-2017HTG00327

PATIENT
  Age: 16 Year
  Sex: Female

DRUGS (1)
  1. FLUOXETINE [Suspect]
     Active Substance: FLUOXETINE HYDROCHLORIDE
     Indication: DEPRESSION
     Dosage: UNK
     Route: 048

REACTIONS (7)
  - Intentional overdose [Unknown]
  - Intentional self-injury [Unknown]
  - Condition aggravated [Unknown]
  - Suicide attempt [Unknown]
  - Suicidal ideation [Unknown]
  - Suicidal behaviour [Unknown]
  - Depressed mood [Unknown]

NARRATIVE: CASE EVENT DATE: 20170915
